FAERS Safety Report 8042846-7 (Version None)
Quarter: 2012Q1

REPORT INFORMATION
  Report Type: 
  Country: None (occurrence: None)
  Receive Date: 20120112
  Receipt Date: 20120110
  Transmission Date: 20120608
  Serious: No
  Sender: FDA-Public Use
  Company Number: US-PFIZER INC-2012008332

PATIENT
  Sex: Female
  Weight: 68 kg

DRUGS (4)
  1. METFORMIN [Concomitant]
     Indication: DIABETES MELLITUS
     Dosage: UNK, TWO TIMES A DAY
  2. AVAPRO [Concomitant]
     Indication: HYPERTENSION
     Dosage: UNK
  3. CHANTIX [Suspect]
     Indication: SMOKING CESSATION THERAPY
     Dosage: 0.5 MG, DAILY
     Dates: start: 20111226
  4. CHANTIX [Suspect]
     Dosage: 1 MG, 2X/DAY

REACTIONS (5)
  - DIZZINESS [None]
  - BLOOD SODIUM DECREASED [None]
  - NAUSEA [None]
  - BLOOD GLUCOSE INCREASED [None]
  - INFLAMMATION [None]
